FAERS Safety Report 15118140 (Version 2)
Quarter: 2018Q3

REPORT INFORMATION
  Report Type: Spontaneous
  Country: JP (occurrence: JP)
  Receive Date: 20180707
  Receipt Date: 20180716
  Transmission Date: 20181010
  Serious: Yes (Disabling, Other)
  Sender: FDA-Public Use
  Company Number: JP-NOVOPROD-608254

PATIENT
  Age: 72 Year
  Sex: Male

DRUGS (2)
  1. NOVORAPID [Suspect]
     Active Substance: INSULIN ASPART
     Indication: DIABETES MELLITUS
     Dosage: UNK
     Route: 058
  2. TRESIBA CHU [Suspect]
     Active Substance: INSULIN DEGLUDEC
     Indication: DIABETES MELLITUS
     Dosage: UNK
     Route: 058

REACTIONS (5)
  - Cataract [Unknown]
  - Hypoglycaemia [Unknown]
  - Diabetic retinopathy [Unknown]
  - Blindness unilateral [Unknown]
  - Nephropathy [Unknown]
